FAERS Safety Report 5907470-8 (Version None)
Quarter: 2008Q4

REPORT INFORMATION
  Report Type: 
  Country: None (occurrence: None)
  Receive Date: 20081003
  Receipt Date: 20080929
  Transmission Date: 20090506
  Serious: Yes (Hospitalization)
  Sender: FDA-Public Use
  Company Number: B0539167A

PATIENT
  Age: 85 Year
  Sex: Male

DRUGS (6)
  1. AMOXICILLIN [Suspect]
     Indication: NASOPHARYNGITIS
     Dosage: 500MG THREE TIMES PER DAY
     Route: 048
     Dates: start: 20080428, end: 20080504
  2. NIFLURIL [Suspect]
     Indication: NASOPHARYNGITIS
     Dosage: 250MG THREE TIMES PER DAY
     Route: 048
     Dates: start: 20080428, end: 20080504
  3. AMLOD [Concomitant]
     Indication: DRUG USE FOR UNKNOWN INDICATION
     Route: 065
  4. COTAREG [Concomitant]
     Indication: DRUG USE FOR UNKNOWN INDICATION
     Route: 065
  5. NOVONORM [Concomitant]
     Indication: DRUG USE FOR UNKNOWN INDICATION
     Route: 065
  6. PLAVIX [Concomitant]
     Indication: DRUG USE FOR UNKNOWN INDICATION
     Route: 065

REACTIONS (8)
  - ABDOMINAL PAIN [None]
  - AUTOIMMUNE HEPATITIS [None]
  - HYPERBILIRUBINAEMIA [None]
  - JAUNDICE [None]
  - MIXED LIVER INJURY [None]
  - OESOPHAGITIS ULCERATIVE [None]
  - RENAL FAILURE [None]
  - VOMITING [None]
